FAERS Safety Report 10911563 (Version 5)
Quarter: 2015Q2

REPORT INFORMATION
  Report Type: Spontaneous
  Country: JP (occurrence: JP)
  Receive Date: 20150313
  Receipt Date: 20150409
  Transmission Date: 20150821
  Serious: Yes (Hospitalization)
  Sender: FDA-Public Use
  Company Number: JP-ASTRAZENECA-2015SE22776

PATIENT
  Age: 39 Year
  Sex: Female
  Weight: 46 kg

DRUGS (3)
  1. FORXIGA [Suspect]
     Active Substance: DAPAGLIFLOZIN
     Indication: LATENT AUTOIMMUNE DIABETES IN ADULTS
     Route: 048
     Dates: start: 20140602, end: 20140730
  2. FORXIGA [Suspect]
     Active Substance: DAPAGLIFLOZIN
     Indication: LATENT AUTOIMMUNE DIABETES IN ADULTS
     Route: 048
  3. VICTOZA [Concomitant]
     Active Substance: LIRAGLUTIDE
     Indication: LATENT AUTOIMMUNE DIABETES IN ADULTS
     Route: 058
     Dates: start: 20130107

REACTIONS (3)
  - Ketoacidosis [Recovered/Resolved]
  - Off label use [Unknown]
  - Appendicitis [Recovered/Resolved]

NARRATIVE: CASE EVENT DATE: 20140729
